FAERS Safety Report 15888418 (Version 1)
Quarter: 2019Q1

REPORT INFORMATION
  Report Type: Spontaneous
  Country: FR (occurrence: FR)
  Receive Date: 20190130
  Receipt Date: 20190130
  Transmission Date: 20190417
  Serious: Yes (Hospitalization)
  Sender: FDA-Public Use
  Company Number: FR-ACCORD-104144

PATIENT
  Age: 81 Year
  Sex: Male

DRUGS (5)
  1. EUCREAS [Suspect]
     Active Substance: METFORMIN HYDROCHLORIDE\VILDAGLIPTIN
     Indication: TYPE 2 DIABETES MELLITUS
     Dosage: STRENGTH:50 MG / 1000 MG
     Route: 048
     Dates: start: 20091210, end: 20180310
  2. KARDEGIC [Concomitant]
     Active Substance: ASPIRIN DL-LYSINE
     Dosage: STRENGTH:300 MG
     Route: 048
  3. JOSIR [Concomitant]
     Active Substance: TAMSULOSIN
     Dosage: STRENGTH:0.4 MG
     Route: 048
  4. GLIMEPIRIDE. [Suspect]
     Active Substance: GLIMEPIRIDE
     Indication: TYPE 2 DIABETES MELLITUS
     Route: 048
     Dates: start: 1999, end: 20180310
  5. RAMIPRIL ALMUS [Suspect]
     Active Substance: RAMIPRIL
     Indication: ISCHAEMIC CARDIOMYOPATHY
     Dosage: STRENGTH:10 MG
     Route: 048
     Dates: start: 2006, end: 20180311

REACTIONS (1)
  - Pancreatitis acute [Recovered/Resolved]

NARRATIVE: CASE EVENT DATE: 20180312
